FAERS Safety Report 7199970-0 (Version None)
Quarter: 2010Q4

REPORT INFORMATION
  Report Type: 
  Country: None (occurrence: None)
  Receive Date: 20101228
  Receipt Date: 20101213
  Transmission Date: 20110411
  Serious: No
  Sender: FDA-Public Use
  Company Number: US-PFIZER INC-2010171770

PATIENT

DRUGS (3)
  1. EFFEXOR XR [Suspect]
     Dosage: UNK
     Dates: start: 20080101
  2. EFFEXOR XR [Suspect]
     Dosage: 37.5 MG, UNK
     Dates: start: 20101001
  3. EFFEXOR XR [Suspect]
     Dosage: 35 MG, UNK
     Dates: start: 20101001

REACTIONS (6)
  - CONFUSIONAL STATE [None]
  - DIZZINESS [None]
  - DRUG WITHDRAWAL SYNDROME [None]
  - FEELING ABNORMAL [None]
  - HYPOAESTHESIA ORAL [None]
  - TINNITUS [None]
